FAERS Safety Report 18221556 (Version 1)
Quarter: 2020Q3

REPORT INFORMATION
  Report Type: Spontaneous
  Country: US (occurrence: US)
  Receive Date: 20200831
  Receipt Date: 20200831
  Transmission Date: 20201103
  Serious: Yes (Death)
  Sender: FDA-Public Use
  Company Number: None

PATIENT
  Age: 81 Year
  Sex: Male

DRUGS (8)
  1. ROSUVASTATIN. [Concomitant]
     Active Substance: ROSUVASTATIN
  2. VOTRIENT [Suspect]
     Active Substance: PAZOPANIB HYDROCHLORIDE
     Indication: PRODUCT USED FOR UNKNOWN INDICATION
     Route: 048
     Dates: start: 20200730
  3. LORAZEPAM. [Concomitant]
     Active Substance: LORAZEPAM
  4. LEVEMIR [Concomitant]
     Active Substance: INSULIN DETEMIR
  5. ONDANSETRON [Concomitant]
     Active Substance: ONDANSETRON
  6. LIDO/PRILOCN [Concomitant]
  7. PROCHLORPER [Concomitant]
  8. DEXAMETHASON [Concomitant]
     Active Substance: DEXAMETHASONE

REACTIONS (1)
  - Death [None]
